FAERS Safety Report 9044677 (Version 1)
Quarter: 2013Q1

REPORT INFORMATION
  Report Type: Report from Study
  Country: US (occurrence: US)
  Receive Date: 20130130
  Receipt Date: 20130130
  Transmission Date: 20140127
  Serious: No
  Sender: FDA-Public Use
  Company Number: US-ABBOTT-12P-163-0960978-00

PATIENT
  Age: 45 Year
  Sex: Female

DRUGS (8)
  1. HUMIRA 40 MG/0.8 ML PEN [Suspect]
     Indication: CROHN^S DISEASE
     Dates: start: 20120604, end: 20120604
  2. HUMIRA 40 MG/0.8 ML PEN [Suspect]
     Dates: start: 20120619, end: 20120619
  3. IMURAN [Concomitant]
     Indication: CROHN^S DISEASE
  4. IMURAN [Concomitant]
     Dates: end: 20120722
  5. PROZAC [Concomitant]
     Indication: DEPRESSION
  6. MULTIVITAMIN [Concomitant]
     Indication: SUPPLEMENTATION THERAPY
  7. VITAMINS [Concomitant]
     Indication: PRODUCT USED FOR UNKNOWN INDICATION
  8. PREDNISONE [Concomitant]
     Indication: CROHN^S DISEASE

REACTIONS (5)
  - Injection site bruising [Recovered/Resolved]
  - Injection site bruising [Recovered/Resolved]
  - Increased tendency to bruise [None]
  - Injection site pain [Recovered/Resolved]
  - Injection site pain [Recovered/Resolved]
